FAERS Safety Report 9420252 (Version 2)
Quarter: 2013Q3

REPORT INFORMATION
  Report Type: Spontaneous
  Country: US (occurrence: US)
  Receive Date: 20130725
  Receipt Date: 20130820
  Transmission Date: 20140515
  Serious: No
  Sender: FDA-Public Use
  Company Number: US-PFIZER INC-2013216172

PATIENT
  Sex: Male

DRUGS (1)
  1. VISTARIL [Suspect]
     Dosage: UNK
     Dates: end: 20110707

REACTIONS (3)
  - Drug hypersensitivity [Unknown]
  - Muscle spasms [Unknown]
  - Restless legs syndrome [Not Recovered/Not Resolved]
